FAERS Safety Report 11511329 (Version 1)
Quarter: 2015Q3

REPORT INFORMATION
  Report Type: Spontaneous
  Country: US (occurrence: US)
  Receive Date: 20150915
  Receipt Date: 20150915
  Transmission Date: 20151125
  Serious: Yes (Other)
  Sender: FDA-Public Use
  Company Number: US-MYLANLABS-2015M1031135

PATIENT

DRUGS (5)
  1. SYNTHROID [Concomitant]
     Active Substance: LEVOTHYROXINE SODIUM
     Dosage: UNK
     Route: 065
  2. CALCITONIN SALMON. [Suspect]
     Active Substance: CALCITONIN SALMON
     Indication: OSTEOPOROSIS
     Dosage: UNK
     Route: 045
     Dates: start: 2009, end: 2012
  3. CALCITONIN [Concomitant]
     Active Substance: CALCITONIN
     Dosage: UNK
     Route: 045
     Dates: start: 2009, end: 2012
  4. CALCITONIN SALMON. [Suspect]
     Active Substance: CALCITONIN SALMON
     Dosage: UNK
     Dates: start: 20130203
  5. CLOBUTINOL [Concomitant]
     Active Substance: CLOBUTINOL
     Dosage: UNK
     Route: 065
     Dates: start: 2012

REACTIONS (3)
  - HER-2 positive breast cancer [Not Recovered/Not Resolved]
  - Abdominal discomfort [Unknown]
  - Malaise [Unknown]

NARRATIVE: CASE EVENT DATE: 2013
